FAERS Safety Report 4299053-3 (Version None)
Quarter: 2004Q1

REPORT INFORMATION
  Report Type: 
  Country: None (occurrence: None)
  Receive Date: 20040217
  Receipt Date: 20040202
  Transmission Date: 20041129
  Serious: Yes (Hospitalization)
  Sender: FDA-Public Use
  Company Number: 0104-1458

PATIENT

DRUGS (1)
  1. ADVICOR [Suspect]

REACTIONS (1)
  - RHABDOMYOLYSIS [None]
